FAERS Safety Report 8512122-4 (Version None)
Quarter: 2012Q3

REPORT INFORMATION
  Report Type: 
  Country: None (occurrence: None)
  Receive Date: 20120716
  Receipt Date: 20120709
  Transmission Date: 20120928
  Serious: Yes (Death)
  Sender: FDA-Public Use
  Company Number: US-INCYTE CORPORATION-2012IN001238

PATIENT
  Sex: Male

DRUGS (3)
  1. JAKAFI [Suspect]
     Indication: MYELOFIBROSIS
     Dosage: 5 MG, BID
     Route: 048
     Dates: start: 20111231, end: 20120427
  2. PROTONIX [Concomitant]
     Dosage: 40 MG, QD
     Route: 048
  3. ATENOLOL [Concomitant]
     Dosage: 12.5 MG, BID
     Route: 048

REACTIONS (1)
  - DEATH [None]
